FAERS Safety Report 16897675 (Version 5)
Quarter: 2019Q4

REPORT INFORMATION
  Report Type: Spontaneous
  Country: PT (occurrence: PT)
  Receive Date: 20191009
  Receipt Date: 20191211
  Transmission Date: 20200122
  Serious: Yes (Hospitalization, Other)
  Sender: FDA-Public Use
  Company Number: PT-AUROBINDO-AUR-APL-2019-064786

PATIENT
  Age: 78 Year
  Sex: Female

DRUGS (4)
  1. OMEPRAZOLE. [Interacting]
     Active Substance: OMEPRAZOLE
     Indication: CARDIAC FAILURE
  2. ACETYLSALICYLIC ACID [Suspect]
     Active Substance: ASPIRIN
     Indication: CARDIAC FAILURE
     Dosage: UNK
     Route: 065
  3. ACETYLSALICYLIC ACID [Suspect]
     Active Substance: ASPIRIN
     Indication: CARDIOMETABOLIC SYNDROME
  4. OMEPRAZOLE. [Suspect]
     Active Substance: OMEPRAZOLE
     Indication: CARDIOMETABOLIC SYNDROME
     Dosage: UNK
     Route: 065

REACTIONS (9)
  - Electrocardiogram QT prolonged [Recovered/Resolved]
  - Tremor [Recovered/Resolved]
  - Eyelid oedema [Recovered/Resolved]
  - Blood parathyroid hormone decreased [Recovered/Resolved]
  - Hypocalcaemia [Recovered/Resolved]
  - Eyelid myoclonus [Recovered/Resolved]
  - Hypomagnesaemia [Recovered/Resolved]
  - Trousseau^s sign [Recovered/Resolved]
  - Drug interaction [Recovered/Resolved]
